FAERS Safety Report 10729513 (Version 2)
Quarter: 2015Q1

REPORT INFORMATION
  Report Type: Spontaneous
  Country: US (occurrence: US)
  Receive Date: 20150122
  Receipt Date: 20150126
  Transmission Date: 20150721
  Serious: Yes (Hospitalization)
  Sender: FDA-Public Use
  Company Number: US-MALLINCKRODT-T201404661

PATIENT
  Age: 12 Year
  Sex: Male
  Weight: 88.2 kg

DRUGS (10)
  1. ALLEGRA [Concomitant]
     Active Substance: FEXOFENADINE HYDROCHLORIDE
     Dosage: 60 MG, QD
  2. PRILOSEC [Concomitant]
     Active Substance: OMEPRAZOLE MAGNESIUM
     Dosage: 40 MG, QD
  3. H.P. ACTHAR [Suspect]
     Active Substance: CORTICOTROPIN
     Indication: GLOMERULONEPHRITIS MINIMAL LESION
     Dosage: 80 U, BIWEEKLY
     Route: 058
     Dates: start: 20141009
  4. PROGRAF [Concomitant]
     Active Substance: TACROLIMUS\TACROLIMUS ANHYDROUS
     Dosage: 1 MG, BID
     Dates: end: 20141029
  5. PROGRAF [Concomitant]
     Active Substance: TACROLIMUS\TACROLIMUS ANHYDROUS
     Dosage: 1 MG QAM AND 2 MG QPM
     Dates: start: 20141029
  6. LIPITOR [Concomitant]
     Active Substance: ATORVASTATIN CALCIUM
     Dosage: 20 MG, QHS
  7. VITAMIN D [Concomitant]
     Active Substance: CHOLECALCIFEROL
     Dosage: 50000 UNITS WEEKLY
  8. LASIX [Concomitant]
     Active Substance: FUROSEMIDE
     Dosage: 40 MG, QD
  9. PREDNISONE. [Concomitant]
     Active Substance: PREDNISONE
     Dosage: 5 MG, 10 MG QOD
     Dates: end: 20141028
  10. LISINOPRIL. [Concomitant]
     Active Substance: LISINOPRIL
     Dosage: 20 MG, QHS

REACTIONS (15)
  - Blood albumin decreased [Recovering/Resolving]
  - Gastroenteritis [Unknown]
  - Hypoalbuminaemia [Unknown]
  - Product quality issue [Unknown]
  - Vomiting [Unknown]
  - Generalised oedema [Recovering/Resolving]
  - Oedema [Recovering/Resolving]
  - Fluid retention [Recovering/Resolving]
  - Diarrhoea [Unknown]
  - Nephrotic syndrome [Unknown]
  - Fatigue [Not Recovered/Not Resolved]
  - Upper respiratory tract infection [Recovering/Resolving]
  - Fluid overload [Recovering/Resolving]
  - Ascites [Unknown]
  - Abdominal pain [Unknown]

NARRATIVE: CASE EVENT DATE: 2014
